FAERS Safety Report 7480596-6 (Version None)
Quarter: 2011Q2

REPORT INFORMATION
  Report Type: 
  Country: None (occurrence: None)
  Receive Date: 20110516
  Receipt Date: 20110506
  Transmission Date: 20111010
  Serious: Yes (Other)
  Sender: FDA-Public Use
  Company Number: PHFR2011GB02635

PATIENT
  Sex: Male

DRUGS (2)
  1. CLOZARIL [Suspect]
     Indication: SCHIZOPHRENIA
     Dates: start: 20080101
  2. CLOZARIL [Suspect]
     Indication: DELUSIONAL DISORDER, UNSPECIFIED TYPE
     Dates: start: 20110301

REACTIONS (9)
  - DELIRIUM [None]
  - FACTITIOUS DISORDER [None]
  - CHEMICAL POISONING [None]
  - VOMITING [None]
  - ABSCESS [None]
  - HYPERSENSITIVITY [None]
  - PSYCHOTIC DISORDER [None]
  - AUTONOMIC NERVOUS SYSTEM IMBALANCE [None]
  - DIARRHOEA [None]
